FAERS Safety Report 9698577 (Version 2)
Quarter: 2013Q4

REPORT INFORMATION
  Report Type: Spontaneous
  Country: GB (occurrence: GB)
  Receive Date: 20131120
  Receipt Date: 20131202
  Transmission Date: 20140711
  Serious: Yes (Life-Threatening, Hospitalization, Other)
  Sender: FDA-Public Use
  Company Number: GB-GLAXOSMITHKLINE-B0940011A

PATIENT
  Age: 33 Year
  Sex: Female

DRUGS (7)
  1. MALARONE [Suspect]
     Indication: MALARIA PROPHYLAXIS
     Dosage: 1TAB PER DAY
     Route: 048
     Dates: start: 20131104, end: 20131104
  2. NITROFURANTOIN [Concomitant]
  3. OMEPRAZOLE [Concomitant]
  4. METRONIDAZOLE [Concomitant]
  5. AMOXICILLIN [Concomitant]
  6. VALACICLOVIR [Concomitant]
  7. UNSPECIFIED MEDICATION [Concomitant]
     Indication: HELICOBACTER INFECTION

REACTIONS (1)
  - Swollen tongue [Recovered/Resolved]
